FAERS Safety Report 9788285 (Version 1)
Quarter: 2013Q4

REPORT INFORMATION
  Report Type: Report from Study
  Country: US (occurrence: US)
  Receive Date: 20131230
  Receipt Date: 20131230
  Transmission Date: 20140711
  Serious: No
  Sender: FDA-Public Use
  Company Number: PHEH2013US026054

PATIENT
  Sex: Female
  Weight: 58.96 kg

DRUGS (17)
  1. TASIGNA [Suspect]
     Indication: CHRONIC MYELOID LEUKAEMIA
     Dosage: 300 MG, BID
     Route: 048
  2. OXYCONTIN [Concomitant]
  3. OXYCODONE [Concomitant]
  4. METHOCARBAMOL [Concomitant]
  5. ATIVAN [Concomitant]
  6. VALIUM [Concomitant]
  7. ZOFRAN [Concomitant]
  8. XANAX [Concomitant]
  9. CYMBALTA [Concomitant]
  10. NICOTINE [Concomitant]
  11. EPIPEN [Concomitant]
  12. CLARITIN [Concomitant]
  13. ENSURE PLUS [Concomitant]
  14. MILK OF MAGNESIA [Concomitant]
  15. MIRALAX [Concomitant]
  16. MELATONIN [Concomitant]
  17. MARINOL [Concomitant]

REACTIONS (2)
  - Dry skin [Unknown]
  - Periorbital oedema [Unknown]
